FAERS Safety Report 9781056 (Version 1)
Quarter: 2013Q4

REPORT INFORMATION
  Report Type: Spontaneous
  Country: US (occurrence: None)
  Receive Date: 20131223
  Receipt Date: 20131223
  Transmission Date: 20140711
  Serious: Yes (Life-Threatening, Hospitalization, Disabling, Other)
  Sender: FDA-Public Use
  Company Number: None

PATIENT
  Sex: 0

DRUGS (1)
  1. PAXIL [Suspect]
     Indication: GENERALISED ANXIETY DISORDER
     Route: 048
     Dates: start: 20130722, end: 20131019

REACTIONS (31)
  - Impetigo [None]
  - Impaired healing [None]
  - Drug hypersensitivity [None]
  - Paronychia [None]
  - Skin bacterial infection [None]
  - Anaemia [None]
  - Increased tendency to bruise [None]
  - Haemorrhage [None]
  - Dissociation [None]
  - Hypoaesthesia [None]
  - Paraesthesia [None]
  - Skin discolouration [None]
  - Blister [None]
  - Skin exfoliation [None]
  - Skin disorder [None]
  - Chromaturia [None]
  - Urticaria [None]
  - Nasal inflammation [None]
  - Rectal haemorrhage [None]
  - Menorrhagia [None]
  - Glossodynia [None]
  - Swollen tongue [None]
  - Eczema [None]
  - Hyperhidrosis [None]
  - Skin lesion [None]
  - Face oedema [None]
  - Pruritus [None]
  - Hair disorder [None]
  - Secretion discharge [None]
  - Dyspnoea [None]
  - Lip infection [None]
